FAERS Safety Report 22530798 (Version 1)
Quarter: 2023Q2

REPORT INFORMATION
  Report Type: Spontaneous
  Country: CN (occurrence: CN)
  Receive Date: 20230607
  Receipt Date: 20230607
  Transmission Date: 20230721
  Serious: Yes (Other)
  Sender: FDA-Public Use
  Company Number: CN-PFIZER INC-PV202300099144

PATIENT
  Age: 38 Year
  Sex: Female
  Weight: 45 kg

DRUGS (2)
  1. SOLU-MEDROL [Suspect]
     Active Substance: METHYLPREDNISOLONE SODIUM SUCCINATE
     Indication: Symptomatic treatment
     Dosage: 40 ML, 1X/DAY
     Route: 041
     Dates: start: 20230504, end: 20230504
  2. NICOTINIC ACID [Suspect]
     Active Substance: NIACIN
     Indication: Symptomatic treatment
     Dosage: 6 ML, 1X/DAY
     Route: 041
     Dates: start: 20230504, end: 20230504

REACTIONS (6)
  - Abdominal discomfort [Recovered/Resolved]
  - Hyperhidrosis [Recovered/Resolved]
  - Dyspnoea [Recovered/Resolved]
  - Vomiting [Unknown]
  - Cold sweat [Unknown]
  - Abdominal pain lower [Recovering/Resolving]

NARRATIVE: CASE EVENT DATE: 20230504
